FAERS Safety Report 20052091 (Version 5)
Quarter: 2022Q1

REPORT INFORMATION
  Report Type: Report from Study
  Country: US (occurrence: US)
  Receive Date: 20211110
  Receipt Date: 20220318
  Transmission Date: 20220423
  Serious: Yes (Other)
  Sender: FDA-Public Use
  Company Number: US-NOVARTISTESTPH-NVSC2021US256349

PATIENT
  Age: 2 Year
  Sex: Male

DRUGS (2)
  1. ILARIS [Suspect]
     Active Substance: CANAKINUMAB
     Indication: Juvenile idiopathic arthritis
     Dosage: 47 MG, EVERY 4 WEEKS
     Route: 058
     Dates: start: 20210716
  2. ILARIS [Suspect]
     Active Substance: CANAKINUMAB
     Indication: Still^s disease
     Dosage: UNK
     Route: 058
     Dates: start: 20220104

REACTIONS (3)
  - Pneumonia [Unknown]
  - Dysphonia [Unknown]
  - Malaise [Unknown]

NARRATIVE: CASE EVENT DATE: 20211101
